FAERS Safety Report 6590615-7 (Version None)
Quarter: 2010Q1

REPORT INFORMATION
  Report Type: 
  Country: None (occurrence: None)
  Receive Date: 20100219
  Receipt Date: 20100127
  Transmission Date: 20100710
  Serious: Yes (Hospitalization)
  Sender: FDA-Public Use
  Company Number: A0839999A

PATIENT
  Age: 63 Year
  Sex: Male

DRUGS (1)
  1. RYTHMOL [Suspect]
     Indication: ARRHYTHMIA
     Route: 065

REACTIONS (1)
  - DRUG INEFFECTIVE [None]
